FAERS Safety Report 25752987 (Version 1)
Quarter: 2025Q3

REPORT INFORMATION
  Report Type: Spontaneous
  Country: US (occurrence: US)
  Receive Date: 20250902
  Receipt Date: 20250902
  Transmission Date: 20251020
  Serious: No
  Sender: SANDOZ
  Company Number: US-002147023-NVSC2024US243729

PATIENT
  Sex: Male

DRUGS (4)
  1. LEQVIO [Suspect]
     Active Substance: INCLISIRAN SODIUM
     Indication: Product used for unknown indication
     Route: 058
     Dates: start: 2024
  2. ROSUVASTATIN [Suspect]
     Active Substance: ROSUVASTATIN
     Route: 065
  3. ROSUVASTATIN [Suspect]
     Active Substance: ROSUVASTATIN
     Indication: Product used for unknown indication
     Route: 065
  4. ZETIA [Suspect]
     Active Substance: EZETIMIBE
     Indication: Product used for unknown indication
     Route: 065

REACTIONS (5)
  - Laboratory test abnormal [Unknown]
  - Blood cholesterol decreased [Unknown]
  - Renal disorder [Unknown]
  - Injection site pain [Recovered/Resolved]
  - Memory impairment [Unknown]
